FAERS Safety Report 4393588-0 (Version None)
Quarter: 2004Q3

REPORT INFORMATION
  Report Type: 
  Country: None (occurrence: None)
  Receive Date: 20040706
  Receipt Date: 20040706
  Transmission Date: 20050211
  Serious: Yes (Hospitalization)
  Sender: FDA-Public Use
  Company Number: None

PATIENT
  Age: 45 Year
  Sex: Male
  Weight: 81.6475 kg

DRUGS (1)
  1. CLONAZEPAM [Suspect]

REACTIONS (4)
  - FALL [None]
  - FIBULA FRACTURE [None]
  - MENTAL STATUS CHANGES [None]
  - SYNCOPE [None]
